FAERS Safety Report 10579081 (Version 3)
Quarter: 2016Q1

REPORT INFORMATION
  Report Type: Report from Study
  Country: CA (occurrence: CA)
  Receive Date: 20141112
  Receipt Date: 20160128
  Transmission Date: 20160525
  Serious: Yes (Other)
  Sender: FDA-Public Use
  Company Number: CA-ABBVIE-14K-028-1305316-00

PATIENT
  Age: 54 Year
  Sex: Male
  Weight: 125 kg

DRUGS (2)
  1. HUMIRA [Suspect]
     Active Substance: ADALIMUMAB
     Route: 058
     Dates: start: 20140201, end: 201403
  2. HUMIRA [Suspect]
     Active Substance: ADALIMUMAB
     Indication: COLITIS ULCERATIVE
     Route: 058
     Dates: start: 20120728

REACTIONS (8)
  - Lymphadenopathy [Unknown]
  - Hepatic steatosis [Unknown]
  - Lymphoma [Not Recovered/Not Resolved]
  - B-cell lymphoma [Unknown]
  - Cardiac fibrillation [Unknown]
  - Colitis ulcerative [Unknown]
  - Renal cyst [Unknown]
  - Nephrolithiasis [Unknown]

NARRATIVE: CASE EVENT DATE: 20140212
